FAERS Safety Report 4912163-X (Version None)
Quarter: 2006Q1

REPORT INFORMATION
  Report Type: 
  Country: None (occurrence: None)
  Receive Date: 20060215
  Receipt Date: 20050818
  Transmission Date: 20060701
  Serious: No
  Sender: FDA-Public Use
  Company Number: US-GLAXOSMITHKLINE-A0570828A

PATIENT
  Sex: Female

DRUGS (3)
  1. VALTREX [Suspect]
     Dosage: 500G TWICE PER DAY
     Route: 048
     Dates: start: 20050809
  2. INSULIN [Concomitant]
  3. BC [Concomitant]

REACTIONS (1)
  - DYSURIA [None]
